FAERS Safety Report 4743583-4 (Version None)
Quarter: 2005Q3

REPORT INFORMATION
  Report Type: 
  Country: None (occurrence: None)
  Receive Date: 20050809
  Receipt Date: 20050729
  Transmission Date: 20060218
  Serious: Yes (Hospitalization)
  Sender: FDA-Public Use
  Company Number: 2005FR-00166

PATIENT
  Age: 1 Year
  Sex: Male

DRUGS (2)
  1. IBUPROFEN [Suspect]
     Indication: PYREXIA
     Dosage: 50 MG, QDS
  2. ACETAMINOPHEN [Suspect]
     Indication: PYREXIA
     Dosage: 480 MG

REACTIONS (12)
  - AZOTAEMIA [None]
  - BLOOD GLUCOSE INCREASED [None]
  - DEHYDRATION [None]
  - HYPERKALAEMIA [None]
  - NEUTROPHILIA [None]
  - PERITONEAL DIALYSIS [None]
  - RENAL CORTICAL NECROSIS [None]
  - RENAL ISCHAEMIA [None]
  - RENAL TUBULAR NECROSIS [None]
  - RESPIRATORY SYNCYTIAL VIRUS INFECTION [None]
  - SOMNOLENCE [None]
  - URAEMIC ACIDOSIS [None]
